FAERS Safety Report 26054435 (Version 1)
Quarter: 2025Q4

REPORT INFORMATION
  Report Type: Spontaneous
  Country: US (occurrence: US)
  Receive Date: 20251117
  Receipt Date: 20251117
  Transmission Date: 20260117
  Serious: No
  Sender: SANOFI AVENTIS
  Company Number: US-SA-2025SA336527

PATIENT
  Sex: Female
  Weight: 111.82 kg

DRUGS (23)
  1. DUPIXENT [Suspect]
     Active Substance: DUPILUMAB
     Indication: Asthma
     Dosage: 300 MG, QOW
     Route: 058
  2. TEZSPIRE [Concomitant]
     Active Substance: TEZEPELUMAB-EKKO
  3. TYLENOL [Concomitant]
     Active Substance: ACETAMINOPHEN
  4. DULERA [Concomitant]
     Active Substance: FORMOTEROL FUMARATE DIHYDRATE\MOMETASONE FUROATE
  5. SPIRIVA RESPIMAT [Concomitant]
     Active Substance: TIOTROPIUM BROMIDE
  6. ALBUTEROL SULFATE [Concomitant]
     Active Substance: ALBUTEROL SULFATE
  7. FLUTICASONE PROPIONATE [Concomitant]
     Active Substance: FLUTICASONE PROPIONATE
  8. OMEPRAZOLE [Concomitant]
     Active Substance: OMEPRAZOLE
  9. ASPIRIN [Concomitant]
     Active Substance: ASPIRIN
  10. MELOXICAM [Concomitant]
     Active Substance: MELOXICAM
  11. LISINOPRIL [Concomitant]
     Active Substance: LISINOPRIL
  12. ZYRTEC [Concomitant]
     Active Substance: CETIRIZINE HYDROCHLORIDE
  13. MONTELUKAST SODIUM [Concomitant]
     Active Substance: MONTELUKAST SODIUM
  14. ATORVASTATIN CALCIUM [Concomitant]
     Active Substance: ATORVASTATIN CALCIUM
  15. ALLOPURINOL [Concomitant]
     Active Substance: ALLOPURINOL
  16. DULOXETINE HYDROCHLORIDE [Concomitant]
     Active Substance: DULOXETINE HYDROCHLORIDE
  17. ALPRAZOLAM [Concomitant]
     Active Substance: ALPRAZOLAM
  18. BENADRYL [Concomitant]
     Active Substance: DIPHENHYDRAMINE HYDROCHLORIDE
  19. PREDNISONE [Concomitant]
     Active Substance: PREDNISONE
  20. VITAMINS [Concomitant]
     Active Substance: VITAMINS
  21. Glucosamine + chondroitin [Concomitant]
  22. MAGNESIUM [Concomitant]
     Active Substance: MAGNESIUM
  23. VITAMIN D3 [Concomitant]
     Active Substance: CHOLECALCIFEROL

REACTIONS (7)
  - Haemoptysis [Unknown]
  - Fatigue [Unknown]
  - Injection site pain [Unknown]
  - Asthma [Unknown]
  - Wheezing [Unknown]
  - Drug ineffective [Unknown]
  - Product preparation error [Unknown]
